FAERS Safety Report 23809326 (Version 1)
Quarter: 2024Q2

REPORT INFORMATION
  Report Type: Spontaneous
  Country: US (occurrence: None)
  Receive Date: 20240501
  Receipt Date: 20240501
  Transmission Date: 20240716
  Serious: No
  Sender: FDA-Public Use
  Company Number: None

PATIENT
  Age: 18 Year
  Sex: Female

DRUGS (1)
  1. SPRAVATO [Suspect]
     Active Substance: ESKETAMINE
     Dates: start: 20240408, end: 20240424

REACTIONS (3)
  - Suicidal ideation [None]
  - Intentional self-injury [None]
  - Suicide attempt [None]

NARRATIVE: CASE EVENT DATE: 20240430
